FAERS Safety Report 9720875 (Version 1)
Quarter: 2013Q4

REPORT INFORMATION
  Report Type: Spontaneous
  Country: IT (occurrence: IT)
  Receive Date: 20131129
  Receipt Date: 20131129
  Transmission Date: 20140711
  Serious: Yes (Other)
  Sender: FDA-Public Use
  Company Number: PHHY2013IT135928

PATIENT
  Sex: Female

DRUGS (1)
  1. AMOXICILLIN-CLAVULANIC ACID [Suspect]
     Dosage: 2 DF, POSOLOGIC UNIT
     Route: 048
     Dates: start: 20131104, end: 20131105

REACTIONS (1)
  - Oedema [Recovering/Resolving]
